FAERS Safety Report 8491209-9 (Version None)
Quarter: 2012Q3

REPORT INFORMATION
  Report Type: 
  Country: None (occurrence: None)
  Receive Date: 20120706
  Receipt Date: 20120628
  Transmission Date: 20120928
  Serious: Yes (Life-Threatening, Hospitalization)
  Sender: FDA-Public Use
  Company Number: JP-BAYER-2012-059280

PATIENT
  Age: 85 Year
  Sex: Male
  Weight: 64 kg

DRUGS (4)
  1. REBAMIPIDE [Concomitant]
     Dosage: DAILY DOSE 300 MG
     Route: 048
     Dates: start: 20120418
  2. NEXAVAR [Suspect]
     Indication: RENAL CELL CARCINOMA
     Dosage: 400 MG, BID
     Route: 048
     Dates: start: 20120418, end: 20120510
  3. LANSOPRAZOLE [Concomitant]
     Dosage: DAILY DOSE 30 MG
     Route: 048
     Dates: start: 20120418
  4. MAGLAX [Concomitant]
     Dosage: DAILY DOSE 990 MG
     Route: 048
     Dates: start: 20120418

REACTIONS (2)
  - MALAISE [None]
  - HYPONATRAEMIA [None]
